FAERS Safety Report 18466978 (Version 2)
Quarter: 2020Q4

REPORT INFORMATION
  Report Type: Spontaneous
  Country: US (occurrence: US)
  Receive Date: 20201105
  Receipt Date: 20201203
  Transmission Date: 20210114
  Serious: No
  Sender: FDA-Public Use
  Company Number: US-BAUSCH-BL-2020-030568

PATIENT
  Age: 61 Year
  Sex: Female
  Weight: 61.29 kg

DRUGS (1)
  1. LUMIFY [Suspect]
     Active Substance: BRIMONIDINE TARTRATE
     Indication: OCULAR HYPERAEMIA
     Dosage: ONE DROP IN EACH EYE DAILY AS NEEDED, STARTED: OVER ONE YEAR AGO
     Route: 031
     Dates: start: 2019

REACTIONS (2)
  - Vision blurred [Unknown]
  - Physical product label issue [Unknown]

NARRATIVE: CASE EVENT DATE: 2020
